FAERS Safety Report 20119355 (Version 3)
Quarter: 2021Q4

REPORT INFORMATION
  Report Type: Report from Study
  Country: BR (occurrence: BR)
  Receive Date: 20211126
  Receipt Date: 20211217
  Transmission Date: 20220303
  Serious: Yes (Other)
  Sender: FDA-Public Use
  Company Number: BR-JNJFOC-20211147751

PATIENT
  Age: 42 Year
  Sex: Female
  Weight: 60 kg

DRUGS (1)
  1. REMICADE [Suspect]
     Active Substance: INFLIXIMAB
     Indication: Crohn^s disease
     Route: 042
     Dates: end: 2019

REACTIONS (5)
  - Uterine leiomyoma [Unknown]
  - Psoriasis [Unknown]
  - Herpes virus infection [Unknown]
  - Headache [Unknown]
  - Product storage error [Unknown]
